FAERS Safety Report 5365219-4 (Version None)
Quarter: 2007Q2

REPORT INFORMATION
  Report Type: 
  Country: None (occurrence: None)
  Receive Date: 20070530
  Receipt Date: 20070110
  Transmission Date: 20071010
  Serious: No
  Sender: FDA-Public Use
  Company Number: 2006PV019348

PATIENT
  Age: 43 Year
  Sex: Female
  Weight: 95.2554 kg

DRUGS (6)
  1. BYETTA [Suspect]
     Indication: DIABETES MELLITUS NON-INSULIN-DEPENDENT
     Dosage: 10 MCG; BID; SC; 5 MCG; BID; SC
     Route: 058
     Dates: start: 20060101, end: 20060201
  2. BYETTA [Suspect]
     Indication: DIABETES MELLITUS NON-INSULIN-DEPENDENT
     Dosage: 10 MCG; BID; SC; 5 MCG; BID; SC
     Route: 058
     Dates: start: 20060201
  3. GLYBURIDE AND METFORMIN HCL [Concomitant]
  4. GLYBURIDE AND METFORMIN HCL [Concomitant]
  5. ASPIRIN [Concomitant]
  6. ACTOS [Concomitant]

REACTIONS (5)
  - INJECTION SITE BRUISING [None]
  - INJECTION SITE HAEMORRHAGE [None]
  - INJECTION SITE PAIN [None]
  - WEIGHT DECREASED [None]
  - WEIGHT INCREASED [None]
